FAERS Safety Report 9147169 (Version 1)
Quarter: 2013Q1

REPORT INFORMATION
  Report Type: Spontaneous
  Country: CN (occurrence: None)
  Receive Date: 20130213
  Receipt Date: 20130213
  Transmission Date: 20140127
  Serious: Yes (Death)
  Sender: FDA-Public Use
  Company Number: INT_00199_2013

PATIENT
  Age: 9 Day
  Sex: Male

DRUGS (3)
  1. CEFTRIAXONE [Suspect]
     Indication: PRODUCT USED FOR UNKNOWN INDICATION
     Dosage: (0.3  G,  DF)?(UNKNOWN UNTIL NOT CONTINUING)
  2. VITAMIN C [Concomitant]
  3. VITAMIN  B6 [Concomitant]

REACTIONS (3)
  - Anaphylactic shock [None]
  - Prescribed overdose [None]
  - Death neonatal [None]
